FAERS Safety Report 8203741-3 (Version None)
Quarter: 2012Q1

REPORT INFORMATION
  Report Type: 
  Country: None (occurrence: None)
  Receive Date: 20120308
  Receipt Date: 20120301
  Transmission Date: 20120608
  Serious: Yes (Death)
  Sender: FDA-Public Use
  Company Number: DSA_55288_2012

PATIENT
  Sex: Male

DRUGS (1)
  1. XENAZINE [Suspect]
     Indication: HUNTINGTON'S DISEASE
     Dosage: (37.5 MG QID ORAL)
     Route: 048
     Dates: start: 20091103, end: 20120228

REACTIONS (6)
  - ASTHENIA [None]
  - DEHYDRATION [None]
  - MUSCLE SPASMS [None]
  - FATIGUE [None]
  - NEUTROPENIA [None]
  - FEELING ABNORMAL [None]
